FAERS Safety Report 6245412-9 (Version None)
Quarter: 2009Q2

REPORT INFORMATION
  Report Type: 
  Country: None (occurrence: None)
  Receive Date: 20090625
  Receipt Date: 20090527
  Transmission Date: 20091009
  Serious: No
  Sender: FDA-Public Use
  Company Number: US-BAYER-200911661BCC

PATIENT
  Age: 86 Year
  Sex: Female
  Weight: 86 kg

DRUGS (9)
  1. ALEVE [Suspect]
     Indication: ARTHRALGIA
     Dosage: TOOK SMOOTH GELS AND EITHER CAPLETS OR TABLETS
     Route: 048
  2. ALEVE ARTHRITIS LIQUID GELS [Suspect]
     Indication: ARTHRALGIA
     Dosage: TOTAL DAILY DOSE: 220 MG  UNIT DOSE: 220 MG
     Route: 048
     Dates: start: 20090526, end: 20090526
  3. HYZAAR [Concomitant]
     Route: 065
  4. AMLOVIDINE BESYLATE [Concomitant]
     Route: 065
  5. MECLICINE HCL [Concomitant]
     Route: 065
  6. METOPROLOL TARTRATE [Concomitant]
     Route: 065
  7. PAROXETINE HCL [Concomitant]
     Route: 065
  8. COLACE [Concomitant]
     Indication: CONSTIPATION
     Route: 065
  9. ANALPRAM [Concomitant]
     Route: 065

REACTIONS (2)
  - DIARRHOEA [None]
  - FAECES DISCOLOURED [None]
